FAERS Safety Report 7507140-9 (Version None)
Quarter: 2011Q2

REPORT INFORMATION
  Report Type: 
  Country: None (occurrence: None)
  Receive Date: 20110526
  Receipt Date: 20081001
  Transmission Date: 20111010
  Serious: Yes (Other)
  Sender: FDA-Public Use
  Company Number: US-BAYER-2011-006286

PATIENT
  Age: 65 Year
  Sex: Female
  Weight: 78.912 kg

DRUGS (12)
  1. COREG [Concomitant]
     Dosage: 10MG THREE TIMES A DAY.
     Route: 048
  2. RED BLOOD CELLS [Concomitant]
     Dosage: TWO UNITS
     Dates: start: 20070710
  3. LASIX [Concomitant]
     Dosage: 40MG DAILY
     Route: 048
  4. GLUCOVANCE [Concomitant]
     Dosage: 5/500 TWO TIMES A DAY
     Route: 048
  5. TRASYLOL [Suspect]
     Indication: MITRAL VALVE REPLACEMENT
  6. DIGOXIN [Concomitant]
     Dosage: 0.5MG
     Route: 042
  7. INSULIN [Concomitant]
     Dosage: 15 UNITS
     Route: 042
     Dates: start: 20070710
  8. TRASYLOL [Suspect]
     Indication: CORONARY ARTERY BYPASS
     Dosage: 200 ML LOADING DOSE FOLLOWED BY 50 ML / HOUR INFUSION AND THEN DECREASED TO 25 ML / HOUR
     Route: 042
     Dates: start: 20070710, end: 20070710
  9. AVANDIA [Concomitant]
     Dosage: 8MG DAILY
     Route: 048
  10. ENALAPRIL MALEATE [Concomitant]
     Dosage: 10MG DAILY
     Route: 048
  11. AMIODARONE HCL [Concomitant]
     Dosage: 150MG
     Route: 042
     Dates: start: 20070710
  12. HEPARIN [Concomitant]
     Dosage: 33,000 UNITS
     Route: 042
     Dates: start: 20070710, end: 20070710

REACTIONS (6)
  - PAIN [None]
  - ANXIETY [None]
  - EMOTIONAL DISTRESS [None]
  - INJURY [None]
  - RENAL FAILURE [None]
  - STRESS [None]
